FAERS Safety Report 5644590-X (Version None)
Quarter: 2008Q1

REPORT INFORMATION
  Report Type: 
  Country: None (occurrence: None)
  Receive Date: 20080229
  Receipt Date: 20070322
  Transmission Date: 20080703
  Serious: No
  Sender: FDA-Public Use
  Company Number: A0644670A

PATIENT
  Sex: Female

DRUGS (1)
  1. VALTREX [Suspect]
     Route: 065

REACTIONS (1)
  - RASH GENERALISED [None]
